FAERS Safety Report 10789229 (Version 3)
Quarter: 2015Q1

REPORT INFORMATION
  Report Type: Report from Study
  Country: CA (occurrence: CA)
  Receive Date: 20150212
  Receipt Date: 20150325
  Transmission Date: 20150721
  Serious: Yes (Other)
  Sender: FDA-Public Use
  Company Number: CA-BEH-2015048577

PATIENT
  Sex: Male

DRUGS (1)
  1. HIZENTRA [Suspect]
     Active Substance: HUMAN IMMUNOGLOBULIN G
     Indication: PRIMARY IMMUNODEFICIENCY SYNDROME
     Route: 058
     Dates: start: 20141218

REACTIONS (11)
  - Diarrhoea [Unknown]
  - Vomiting [Unknown]
  - Weight decreased [Unknown]
  - Eating disorder [Unknown]
  - Headache [Unknown]
  - Hyperacusis [Unknown]
  - Hyperhidrosis [Unknown]
  - Pyrexia [Unknown]
  - Burning sensation [Unknown]
  - Hypersomnia [Unknown]
  - Malaise [Unknown]
